FAERS Safety Report 4665306-X (Version None)
Quarter: 2005Q2

REPORT INFORMATION
  Report Type: 
  Country: None (occurrence: None)
  Receive Date: 20050517
  Receipt Date: 20050131
  Transmission Date: 20051028
  Serious: No
  Sender: FDA-Public Use
  Company Number: S05-USA-00406-01

PATIENT
  Age: 76 Year
  Sex: Male

DRUGS (8)
  1. NAMENDA [Suspect]
     Indication: CONFUSIONAL STATE
     Dosage: 5 MG QD PO
     Route: 048
     Dates: start: 20050127, end: 20050202
  2. NAMENDA [Suspect]
     Indication: CONFUSIONAL STATE
     Dosage: 5 MG BID PO
     Route: 048
     Dates: start: 20050203, end: 20050209
  3. NAMENDA [Suspect]
     Indication: CONFUSIONAL STATE
     Dosage: 15 MG QD PO
     Route: 048
     Dates: start: 20050210, end: 20050216
  4. NAMENDA [Suspect]
     Indication: CONFUSIONAL STATE
     Dosage: 10 MG BID PO
     Route: 048
     Dates: start: 20050217
  5. ZANTAC [Concomitant]
  6. SAW PALMETTO [Concomitant]
  7. CONTINENCE [Concomitant]
  8. VITAMINS NOS [Concomitant]

REACTIONS (1)
  - INSOMNIA [None]
